FAERS Safety Report 17824614 (Version 1)
Quarter: 2020Q2

REPORT INFORMATION
  Report Type: Spontaneous
  Country: US (occurrence: US)
  Receive Date: 20200526
  Receipt Date: 20200526
  Transmission Date: 20200714
  Serious: No
  Sender: FDA-Public Use
  Company Number: None

PATIENT
  Age: 70 Year
  Sex: Female
  Weight: 59 kg

DRUGS (13)
  1. PROTONIX [Concomitant]
     Active Substance: PANTOPRAZOLE SODIUM
  2. KEPPRA [Concomitant]
     Active Substance: LEVETIRACETAM
  3. LIDOCAINE- PRILOCAINE 2.5-2.5 [Concomitant]
  4. LORAZEPAM 0.5MG [Concomitant]
     Active Substance: LORAZEPAM
  5. ONDANSETRON 4MG [Concomitant]
     Active Substance: ONDANSETRON
  6. WELCHOL 625MG [Concomitant]
  7. CAPECITABINE. [Suspect]
     Active Substance: CAPECITABINE
     Indication: CHOLANGIOCARCINOMA
     Dates: start: 20200501
  8. CALCIUM MAGNESIUM 300-300 [Concomitant]
  9. HYDROCODONE - APAP [Concomitant]
  10. ATORVASTATIN 10MG [Concomitant]
     Active Substance: ATORVASTATIN
  11. MULTI VITAMIN [Concomitant]
     Active Substance: VITAMINS
  12. VITAMIN B12 [Concomitant]
     Active Substance: CYANOCOBALAMIN
  13. LAMICTAL [Concomitant]
     Active Substance: LAMOTRIGINE

REACTIONS (1)
  - Hospice care [None]

NARRATIVE: CASE EVENT DATE: 20200526
